FAERS Safety Report 8332494-3 (Version None)
Quarter: 2012Q2

REPORT INFORMATION
  Report Type: 
  Country: None (occurrence: None)
  Receive Date: 20120503
  Receipt Date: 20120430
  Transmission Date: 20120825
  Serious: No
  Sender: FDA-Public Use
  Company Number: US-PFIZER INC-2012105912

PATIENT
  Sex: Male

DRUGS (2)
  1. SUTENT [Suspect]
     Indication: ABDOMINAL WALL NEOPLASM MALIGNANT
     Dosage: 50 MG, UNK
  2. SUTENT [Suspect]
     Indication: ABDOMINAL NEOPLASM

REACTIONS (3)
  - ABDOMINAL WALL NEOPLASM MALIGNANT [None]
  - ABDOMINAL NEOPLASM [None]
  - DISEASE PROGRESSION [None]
